FAERS Safety Report 6462476-8 (Version None)
Quarter: 2009Q4

REPORT INFORMATION
  Report Type: 
  Country: None (occurrence: None)
  Receive Date: 20091130
  Receipt Date: 20091117
  Transmission Date: 20100525
  Serious: Yes (Hospitalization)
  Sender: FDA-Public Use
  Company Number: ES-ELI_LILLY_AND_COMPANY-ES200911004935

PATIENT
  Age: 84 Year
  Sex: Male

DRUGS (5)
  1. FORTEO [Suspect]
     Indication: OSTEOPOROSIS
     Dosage: 20 UG, DAILY (1/D)
     Route: 058
     Dates: start: 20090701
  2. TERTENSIF RETARD [Concomitant]
     Indication: HYPERTENSION
     Route: 048
  3. MIRTAZAPINE [Concomitant]
     Indication: SLEEP DISORDER
     Dosage: UNK, DAILY (1/D)
     Route: 048
     Dates: start: 20080101
  4. DURAGESIC-100 [Concomitant]
     Indication: PAIN
     Dates: start: 20070101
  5. DACORTIN [Concomitant]
     Indication: PAIN
     Dosage: 5 MG, UNK
     Route: 048
     Dates: start: 20070101

REACTIONS (3)
  - FEBRILE CONVULSION [None]
  - NASOPHARYNGITIS [None]
  - PYREXIA [None]
